FAERS Safety Report 15240757 (Version 1)
Quarter: 2018Q3

REPORT INFORMATION
  Report Type: Spontaneous
  Country: US (occurrence: US)
  Receive Date: 20180710
  Receipt Date: 20180710
  Transmission Date: 20181010
  Serious: Yes (Hospitalization)
  Sender: FDA-Public Use
  Company Number: None

PATIENT
  Age: 74 Year
  Sex: Female

DRUGS (9)
  1. TRIAM/HCTZ [Concomitant]
     Active Substance: HYDROCHLOROTHIAZIDE\TRIAMTERENE
  2. LEVOTHYROXIN [Concomitant]
     Active Substance: LEVOTHYROXINE
  3. LETROZOLE. [Concomitant]
     Active Substance: LETROZOLE
  4. TRAMADOL. [Concomitant]
     Active Substance: TRAMADOL
  5. IBRANCE [Suspect]
     Active Substance: PALBOCICLIB
     Indication: BENIGN BREAST NEOPLASM
     Route: 048
     Dates: start: 20171011
  6. PANTOPRAZOLE [Concomitant]
     Active Substance: PANTOPRAZOLE
  7. ATORVASTATIN [Concomitant]
     Active Substance: ATORVASTATIN
  8. AZELSTINE [Concomitant]
  9. BUPROPIN [Concomitant]
     Active Substance: BUPROPION

REACTIONS (5)
  - Pain in extremity [None]
  - Diarrhoea [None]
  - Headache [None]
  - Lacrimation increased [None]
  - Paraesthesia [None]

NARRATIVE: CASE EVENT DATE: 201806
